FAERS Safety Report 21546556 (Version 1)
Quarter: 2022Q4

REPORT INFORMATION
  Report Type: Spontaneous
  Country: CN (occurrence: CN)
  Receive Date: 20221103
  Receipt Date: 20221103
  Transmission Date: 20230112
  Serious: Yes (Life-Threatening, Other)
  Sender: FDA-Public Use
  Company Number: CN-009507513-2210CHN010419

PATIENT
  Age: 87 Year
  Sex: Male
  Weight: 70 kg

DRUGS (2)
  1. CILASTATIN SODIUM\IMIPENEM [Suspect]
     Active Substance: CILASTATIN SODIUM\IMIPENEM
     Indication: Abdominal infection
     Dosage: 1.0 GRAM (G), EVERY 8 HOURS (Q8H)
     Route: 041
     Dates: start: 20220627, end: 20220701
  2. SODIUM CHLORIDE [Concomitant]
     Active Substance: SODIUM CHLORIDE
     Indication: Medication dilution
     Dosage: 100 MILLILITER (ML),  EVERY 8 HOURS (Q8H)
     Route: 041
     Dates: start: 20220627, end: 20220701

REACTIONS (4)
  - Delirium [Recovered/Resolved]
  - Abdominal infection [Unknown]
  - Incarcerated inguinal hernia [Unknown]
  - Inguinal hernia, obstructive [Unknown]

NARRATIVE: CASE EVENT DATE: 20220101
